FAERS Safety Report 13914774 (Version 2)
Quarter: 2017Q4

REPORT INFORMATION
  Report Type: Spontaneous
  Country: US (occurrence: US)
  Receive Date: 20170829
  Receipt Date: 20171124
  Transmission Date: 20180320
  Serious: No
  Sender: FDA-Public Use
  Company Number: US-JNJFOC-20170800210

PATIENT
  Sex: Female

DRUGS (1)
  1. REMICADE [Suspect]
     Active Substance: INFLIXIMAB
     Indication: CROHN^S DISEASE
     Route: 042
     Dates: start: 2014, end: 2017

REACTIONS (6)
  - Hyperhidrosis [Unknown]
  - Hepatic enzyme increased [Unknown]
  - Drug specific antibody [Unknown]
  - Hot flush [Unknown]
  - Body temperature increased [Unknown]
  - Drug effect decreased [Unknown]
